FAERS Safety Report 13357406 (Version 1)
Quarter: 2017Q1

REPORT INFORMATION
  Report Type: Spontaneous
  Country: JP (occurrence: JP)
  Receive Date: 20170322
  Receipt Date: 20170322
  Transmission Date: 20170429
  Serious: Yes (Death, Other)
  Sender: FDA-Public Use
  Company Number: JP-009507513-1703JPN001949J

PATIENT
  Sex: Male

DRUGS (3)
  1. CANCIDAS [Suspect]
     Active Substance: CASPOFUNGIN ACETATE
     Indication: SYSTEMIC CANDIDA
     Dosage: 70 MG, QD
     Route: 041
     Dates: start: 20161012, end: 20161012
  2. FINIBAX [Concomitant]
     Active Substance: DORIPENEM MONOHYDRATE
     Indication: PNEUMONIA
     Dosage: 0.5 G, TID
     Route: 051
     Dates: start: 20161012, end: 20161013
  3. CANCIDAS [Suspect]
     Active Substance: CASPOFUNGIN ACETATE
     Indication: SYSTEMIC CANDIDA
     Dosage: 50 MG, QD
     Route: 041
     Dates: start: 20161013, end: 20161013

REACTIONS (1)
  - Sepsis [Fatal]
